FAERS Safety Report 6315849-8 (Version None)
Quarter: 2009Q3

REPORT INFORMATION
  Report Type: 
  Country: None (occurrence: None)
  Receive Date: 20090820
  Receipt Date: 20070827
  Transmission Date: 20100115
  Serious: Yes (Hospitalization, Other)
  Sender: FDA-Public Use
  Company Number: US-ASTRAZENECA-2006UW11217

PATIENT
  Age: 55 Year
  Sex: Female
  Weight: 80.7 kg

DRUGS (21)
  1. SEROQUEL [Suspect]
     Indication: DEPRESSION
     Dosage: STRENGTH-100MG, 300MG DOSE-200MG-300MG
     Route: 048
     Dates: start: 20030930
  2. SEROQUEL [Suspect]
     Indication: OBSESSIVE-COMPULSIVE DISORDER
     Dosage: STRENGTH-100MG, 300MG DOSE-200MG-300MG
     Route: 048
     Dates: start: 20030930
  3. SEROQUEL [Suspect]
     Dosage: 200 MG - 300 MG
     Route: 048
     Dates: start: 20050101, end: 20060201
  4. SEROQUEL [Suspect]
     Dosage: 200 MG - 300 MG
     Route: 048
     Dates: start: 20050101, end: 20060201
  5. RISPERDAL [Concomitant]
     Dates: start: 20030101
  6. RISPERDAL [Concomitant]
     Route: 048
  7. CLONAZEPAN [Concomitant]
  8. PROZAC [Concomitant]
     Route: 048
  9. TRAZODONE HCL [Concomitant]
     Dosage: 400MG DAILY
     Dates: start: 20030101
  10. TRAZODONE HCL [Concomitant]
     Route: 048
  11. BUTALBITAL [Concomitant]
  12. ULTRAM [Concomitant]
     Dosage: TWO AT NIGHT
     Dates: start: 20030101
  13. LEXAPRO [Concomitant]
     Dosage: 20 MG DAILY
     Dates: start: 20030101
  14. FIORICET [Concomitant]
     Indication: HEADACHE
     Dosage: TWO EVERY 6 HOURS AS NEEDED
     Dates: start: 20050101
  15. TEMAZEPAM [Concomitant]
     Indication: SLEEP DISORDER
     Dates: start: 20050101
  16. LIPITOR [Concomitant]
     Dates: start: 20050101
  17. ESTRADIOL [Concomitant]
     Dates: start: 20050101
  18. DEMEROL [Concomitant]
     Route: 030
  19. PHENERGAN [Concomitant]
     Route: 042
     Dates: start: 19950101
  20. CLONIDINE [Concomitant]
     Route: 048
     Dates: start: 20050101
  21. ATIVAN [Concomitant]
     Route: 042
     Dates: start: 20050101

REACTIONS (4)
  - DIABETES MELLITUS [None]
  - DIABETES MELLITUS INADEQUATE CONTROL [None]
  - DIABETIC GASTROPARESIS [None]
  - DIABETIC KETOACIDOSIS [None]
